FAERS Safety Report 6552595-X (Version None)
Quarter: 2010Q1

REPORT INFORMATION
  Report Type: 
  Country: None (occurrence: None)
  Receive Date: 20100121
  Receipt Date: 20100106
  Transmission Date: 20100710
  Serious: Yes (Hospitalization)
  Sender: FDA-Public Use
  Company Number: SPV1-2010-00047

PATIENT
  Age: 29 Year
  Sex: Male

DRUGS (1)
  1. ELAPRASE [Suspect]
     Indication: MUCOPOLYSACCHARIDOSIS II
     Dosage: 8 DF,1 X/WEEK
     Dates: start: 20061102

REACTIONS (4)
  - CONVULSION [None]
  - DIZZINESS [None]
  - HEART RATE INCREASED [None]
  - MUSCLE TWITCHING [None]
